FAERS Safety Report 7163047-0 (Version None)
Quarter: 2010Q4

REPORT INFORMATION
  Report Type: 
  Country: None (occurrence: None)
  Receive Date: 20101215
  Receipt Date: 20100216
  Transmission Date: 20110411
  Serious: Yes (Other)
  Sender: FDA-Public Use
  Company Number: DE-PFIZER INC-2010019780

PATIENT
  Age: 42 Year
  Sex: Male

DRUGS (4)
  1. LYRICA [Suspect]
     Indication: NEURALGIA
     Dosage: 75 MG, 1X/DAY
     Route: 048
     Dates: start: 20100215
  2. LYRICA [Suspect]
     Indication: BACK PAIN
  3. IBUPROFEN [Concomitant]
     Indication: BACK PAIN
     Dosage: 800 MG, SINGLE
     Route: 048
     Dates: start: 20100215, end: 20100215
  4. RAMIPRIL [Concomitant]
     Indication: HYPERTENSION
     Dosage: UNK
     Route: 048

REACTIONS (3)
  - DYSURIA [None]
  - RENAL PAIN [None]
  - SOMNOLENCE [None]
